APPROVED DRUG PRODUCT: CIMETIDINE
Active Ingredient: CIMETIDINE
Strength: 400MG
Dosage Form/Route: TABLET;ORAL
Application: A074424 | Product #003
Applicant: IVAX PHARMACEUTICALS INC SUB TEVA PHARMACEUTICALS USA
Approved: Jul 28, 1995 | RLD: No | RS: No | Type: DISCN